FAERS Safety Report 9751823 (Version 2)
Quarter: 2014Q2

REPORT INFORMATION
  Report Type: Report from Study
  Country: US (occurrence: US)
  Receive Date: 20131213
  Receipt Date: 20140408
  Transmission Date: 20141212
  Serious: Yes (Hospitalization, Other)
  Sender: FDA-Public Use
  Company Number: US-ROCHE-1314548

PATIENT
  Age: 34 Year
  Sex: Female

DRUGS (11)
  1. XOLAIR [Suspect]
     Indication: ASTHMA
     Route: 065
  2. ERYTHROMYCIN [Concomitant]
  3. PANTOPRAZOLE [Concomitant]
     Route: 048
  4. EPINEPHRINE [Concomitant]
     Dosage: 0.3MG/0.3ML AUTOINJECTOR  AS DIRECTED
     Route: 030
  5. SINGULAR [Concomitant]
     Dosage: AT BEDTIME DAILY
     Route: 048
  6. DELTASONE [Concomitant]
     Dosage: 5/10 ALTERNATE EOD
     Route: 048
  7. ZYRTEC [Concomitant]
     Route: 048
  8. SPIRIVA [Concomitant]
     Route: 055
     Dates: start: 20131003
  9. DUONEB [Concomitant]
     Dosage: 0.5MG-0.3MG/3ML   AS NEEDED
     Route: 065
  10. BUDESONIDE/FORMOTEROL FUMARATE [Concomitant]
     Dosage: 160MCG/4.5MCG
     Route: 055
     Dates: start: 20131003
  11. PROTONIX (UNITED STATES) [Concomitant]
     Dosage: 40MG/10ML INJECTION
     Route: 065
     Dates: end: 20131023

REACTIONS (58)
  - Asthma [Unknown]
  - Oxygen saturation abnormal [Unknown]
  - Dysphonia [Unknown]
  - Gastrooesophageal reflux disease [Unknown]
  - Abdominal pain upper [Unknown]
  - Pharyngeal erythema [Unknown]
  - Vocal cord disorder [Unknown]
  - Nasal congestion [Unknown]
  - Eye pruritus [Unknown]
  - Upper-airway cough syndrome [Unknown]
  - Cough [Unknown]
  - Rash pruritic [Unknown]
  - Eczema [Unknown]
  - Sinusitis [Unknown]
  - Bronchitis [Unknown]
  - Ear infection [Unknown]
  - Pharyngitis streptococcal [Unknown]
  - Malaise [Unknown]
  - Pruritus [Unknown]
  - Feeling of body temperature change [Unknown]
  - Oropharyngeal pain [Unknown]
  - Fatigue [Unknown]
  - Oropharyngeal pain [Unknown]
  - Snoring [Unknown]
  - Sneezing [Unknown]
  - Photophobia [Unknown]
  - Lacrimation increased [Unknown]
  - Chest discomfort [Unknown]
  - Dyspnoea [Unknown]
  - Rash [Unknown]
  - Dry skin [Unknown]
  - Psoriasis [Unknown]
  - Dyspnoea [Unknown]
  - Dyspnoea exertional [Unknown]
  - Reflux laryngitis [Unknown]
  - Gastrooesophageal reflux disease [Unknown]
  - Dysphagia [Unknown]
  - Epistaxis [Unknown]
  - Swelling face [Unknown]
  - Rhinorrhoea [Unknown]
  - Musculoskeletal stiffness [Unknown]
  - Dysphonia [Unknown]
  - Wheezing [Unknown]
  - Dyspnoea [Unknown]
  - Chest pain [Unknown]
  - Palpitations [Unknown]
  - Peripheral swelling [Unknown]
  - Constipation [Unknown]
  - Abdominal distension [Unknown]
  - Dysuria [Unknown]
  - Back pain [Unknown]
  - Arthralgia [Unknown]
  - Dizziness [Unknown]
  - Hypoaesthesia [Unknown]
  - Headache [Unknown]
  - Disturbance in attention [Unknown]
  - Oedema mucosal [Unknown]
  - Pharyngeal erythema [Unknown]
